FAERS Safety Report 4322554-6 (Version None)
Quarter: 2004Q1

REPORT INFORMATION
  Report Type: 
  Country: None (occurrence: None)
  Receive Date: 20040319
  Receipt Date: 20040310
  Transmission Date: 20041129
  Serious: Yes (Hospitalization, Other)
  Sender: FDA-Public Use
  Company Number: 2004-03-0767

PATIENT
  Age: 17 Year
  Sex: Female

DRUGS (3)
  1. GENTAMICIN [Suspect]
     Indication: PERITONEAL DISORDER
     Dosage: 7.5 MG/KG QD
  2. METRONIDAZOLE [Concomitant]
  3. AMPICILLIN [Concomitant]

REACTIONS (7)
  - BARTTER'S SYNDROME [None]
  - BLOOD ELECTROLYTES ABNORMAL [None]
  - HYPOCALCAEMIA [None]
  - HYPOCHLORAEMIA [None]
  - HYPOKALAEMIA [None]
  - HYPOMAGNESAEMIA [None]
  - METABOLIC ALKALOSIS [None]
